FAERS Safety Report 11751096 (Version 1)
Quarter: 2015Q4

REPORT INFORMATION
  Report Type: Spontaneous
  Country: DE (occurrence: DE)
  Receive Date: 20151118
  Receipt Date: 20151118
  Transmission Date: 20160304
  Serious: No
  Sender: FDA-Public Use
  Company Number: DE-ELI_LILLY_AND_COMPANY-DE201511004500

PATIENT
  Sex: Male

DRUGS (1)
  1. CIALIS [Suspect]
     Active Substance: TADALAFIL
     Indication: PRODUCT USED FOR UNKNOWN INDICATION
     Dosage: 5 MG, 1/2 - 1 TABLET PER WEEK
     Route: 048
     Dates: start: 2013

REACTIONS (3)
  - Vision blurred [Unknown]
  - Pyrexia [Unknown]
  - Hot flush [Unknown]

NARRATIVE: CASE EVENT DATE: 20151110
